FAERS Safety Report 8032730-7 (Version None)
Quarter: 2012Q1

REPORT INFORMATION
  Report Type: 
  Country: None (occurrence: None)
  Receive Date: 20120110
  Receipt Date: 20111220
  Transmission Date: 20120608
  Serious: Yes (Death)
  Sender: FDA-Public Use
  Company Number: TR-CELGENEUS-161-C5013-11122666

PATIENT
  Sex: Male

DRUGS (1)
  1. LENALIDOMIDE [Suspect]
     Indication: MYELOFIBROSIS
     Route: 048

REACTIONS (1)
  - DEATH [None]
